FAERS Safety Report 13213648 (Version 2)
Quarter: 2023Q1

REPORT INFORMATION
  Report Type: Spontaneous
  Country: US (occurrence: US)
  Receive Date: 20170209
  Receipt Date: 20230125
  Transmission Date: 20230417
  Serious: Yes (Other)
  Sender: FDA-Public Use
  Company Number: US-ALLERGAN-1665308US

PATIENT
  Sex: Female

DRUGS (5)
  1. BOTOX COSMETIC [Suspect]
     Active Substance: ONABOTULINUMTOXINA
     Indication: Skin wrinkling
     Dosage: UNK, SINGLE
     Route: 030
     Dates: start: 19990307, end: 19990307
  2. BOTOX COSMETIC [Suspect]
     Active Substance: ONABOTULINUMTOXINA
     Indication: Skin wrinkling
     Dosage: UNK, SINGLE
     Route: 030
     Dates: start: 1997, end: 1997
  3. BOTOX COSMETIC [Suspect]
     Active Substance: ONABOTULINUMTOXINA
     Indication: Skin wrinkling
     Dosage: UNK, SINGLE
     Route: 030
     Dates: start: 1998, end: 1998
  4. PREDNISONE [Suspect]
     Active Substance: PREDNISONE
     Indication: Product used for unknown indication
     Dosage: UNK
  5. CARAFATE [Concomitant]
     Active Substance: SUCRALFATE

REACTIONS (23)
  - Dyspnoea [Unknown]
  - Neuromuscular toxicity [Unknown]
  - Feeling abnormal [Unknown]
  - Weight decreased [Unknown]
  - Constipation [Recovered/Resolved]
  - Cholecystitis infective [Unknown]
  - Oesophageal achalasia [Recovered/Resolved]
  - Abdominal pain upper [Not Recovered/Not Resolved]
  - Barrett^s oesophagus [Not Recovered/Not Resolved]
  - Pain [Not Recovered/Not Resolved]
  - Oesophageal achalasia [Unknown]
  - Biliary colic [Unknown]
  - Cystitis [Not Recovered/Not Resolved]
  - Reflux gastritis [Not Recovered/Not Resolved]
  - Illness [Unknown]
  - Injury [Not Recovered/Not Resolved]
  - Gastrooesophageal reflux disease [Unknown]
  - Pyrexia [Unknown]
  - Insomnia [Unknown]
  - Dysphagia [Unknown]
  - Rash [Recovered/Resolved]
  - Malaise [Unknown]
  - Vision blurred [Unknown]

NARRATIVE: CASE EVENT DATE: 19980101
